FAERS Safety Report 9757977 (Version 2)
Quarter: 2013Q4

REPORT INFORMATION
  Report Type: Spontaneous
  Country: BR (occurrence: BR)
  Receive Date: 20131216
  Receipt Date: 20131216
  Transmission Date: 20140711
  Serious: Yes (Other)
  Sender: FDA-Public Use
  Company Number: BR-AMGEN-BRASP2013030134

PATIENT
  Age: 55 Year
  Sex: Female
  Weight: 57 kg

DRUGS (11)
  1. ENBREL [Suspect]
     Indication: RHEUMATOID ARTHRITIS
     Dosage: 50 MG, ONCE PER WEEK
     Route: 058
     Dates: start: 201302
  2. ENBREL [Suspect]
     Dosage: UNK
     Route: 065
  3. ENBREL [Suspect]
     Dosage: UNK
     Route: 065
  4. ALENDRONATE SODIUM [Concomitant]
     Dosage: 70 MG (ONE TABLET), WEEKLY
  5. PREDNISONE [Concomitant]
     Indication: RHEUMATOID ARTHRITIS
     Dosage: 5 MG, UNK
  6. CALCIUM [Concomitant]
     Indication: BONE DISORDER
     Dosage: UNK (500MG STRENGTH)
  7. METHOTREXATE [Concomitant]
     Indication: RHEUMATOID ARTHRITIS
     Dosage: UNK (15MG STRENGTH)
  8. TRANQUINAL [Concomitant]
     Dosage: UNK (STRENGTH 400MG)
  9. LOSARTAN POTASSIUM [Concomitant]
     Dosage: 100 MG (2 TABLETS OF 50MG), DAILY
  10. NIFEDIPINE [Concomitant]
     Dosage: 40 MG (2 TABLETS OF 20MG), DAILY
  11. HYDROCHLOROTHIAZIDE [Concomitant]
     Dosage: 25 MG (1 TABLET), DAILY

REACTIONS (19)
  - Hypertension [Unknown]
  - Throat irritation [Not Recovered/Not Resolved]
  - Cough [Unknown]
  - Dysphonia [Unknown]
  - Sneezing [Not Recovered/Not Resolved]
  - Influenza [Not Recovered/Not Resolved]
  - Pruritus [Not Recovered/Not Resolved]
  - Skin hypertrophy [Not Recovered/Not Resolved]
  - Alopecia [Not Recovered/Not Resolved]
  - Burning sensation [Not Recovered/Not Resolved]
  - Eye irritation [Not Recovered/Not Resolved]
  - Dry skin [Not Recovered/Not Resolved]
  - Conjunctivitis [Not Recovered/Not Resolved]
  - Malaise [Unknown]
  - Secretion discharge [Unknown]
  - Ear pain [Unknown]
  - Tinnitus [Unknown]
  - Hypersensitivity [Not Recovered/Not Resolved]
  - Rhinitis [Unknown]
